FAERS Safety Report 5722185-7 (Version None)
Quarter: 2008Q2

REPORT INFORMATION
  Report Type: 
  Country: None (occurrence: None)
  Receive Date: 20080429
  Receipt Date: 20080418
  Transmission Date: 20081010
  Serious: Yes (Hospitalization)
  Sender: FDA-Public Use
  Company Number: AU-ELI_LILLY_AND_COMPANY-AU200804004982

PATIENT
  Age: 13 Year
  Sex: Male

DRUGS (1)
  1. STRATTERA [Suspect]
     Dosage: 60 MG, UNKNOWN
     Route: 048

REACTIONS (4)
  - ANXIETY [None]
  - DIZZINESS [None]
  - HEART RATE INCREASED [None]
  - PSYCHOTIC DISORDER [None]
